FAERS Safety Report 21944737 (Version 1)
Quarter: 2023Q1

REPORT INFORMATION
  Report Type: Report from Study
  Country: US (occurrence: US)
  Receive Date: 20230202
  Receipt Date: 20230202
  Transmission Date: 20230417
  Serious: Yes (Hospitalization, Other)
  Sender: FDA-Public Use
  Company Number: US-GSKCCFUS-Case-01614778_AE-91207

PATIENT

DRUGS (2)
  1. BELANTAMAB MAFODOTIN [Suspect]
     Active Substance: BELANTAMAB MAFODOTIN
     Indication: Plasma cell myeloma
     Dosage: UNK
     Dates: start: 202111
  2. ATOVAQUONE [Suspect]
     Active Substance: ATOVAQUONE
     Indication: Product used for unknown indication
     Dosage: UNK

REACTIONS (10)
  - Pneumonia [Unknown]
  - COVID-19 [Recovered/Resolved]
  - Oxygen saturation decreased [Unknown]
  - Atrial fibrillation [Unknown]
  - Visual acuity reduced [Unknown]
  - Keratopathy [Unknown]
  - Peripheral swelling [Unknown]
  - Contusion [Unknown]
  - Heart rate increased [Unknown]
  - Tooth discolouration [Unknown]

NARRATIVE: CASE EVENT DATE: 20220127
